FAERS Safety Report 25449966 (Version 1)
Quarter: 2025Q2

REPORT INFORMATION
  Report Type: Other
  Country: ES (occurrence: ES)
  Receive Date: 20250618
  Receipt Date: 20250618
  Transmission Date: 20250717
  Serious: Yes (Hospitalization, Congenital Anomaly, Other)
  Sender: MACLEODS
  Company Number: None

PATIENT

DRUGS (7)
  1. LACOSAMIDE [Suspect]
     Active Substance: LACOSAMIDE
     Indication: Product used for unknown indication
     Dosage: 200 MILLIGRAM, BID (GESTATION PERIOD AT TIME OF EXPOSURE: 2 TRIMESTER)
     Route: 064
  2. LEVETIRACETAM [Suspect]
     Active Substance: LEVETIRACETAM
     Indication: Product used for unknown indication
     Dosage: 4000 MILLIGRAM, QD (GESTATION PERIOD AT TIME OF EXPOSURE: 2 TRIMESTER)
     Route: 064
  3. VALPROATE SODIUM [Suspect]
     Active Substance: VALPROATE SODIUM
     Indication: Product used for unknown indication
     Dosage: 4800 MILLIGRAM, QD (EXPOSURE AT 2 TRIMESTER)
     Route: 064
  4. MIDAZOLAM [Suspect]
     Active Substance: MIDAZOLAM
     Indication: Product used for unknown indication
     Dosage: 12 MILLILITER (1 DOSE HOURLY, EXPOSURE AT 2 TRIMESTER)
     Route: 064
  5. PROPOFOL [Suspect]
     Active Substance: PROPOFOL
     Indication: Product used for unknown indication
     Dosage: 15 MILLILITER (1 DOSE HOURLY, EXPOSURE AT 2 TRIMESTER)
     Route: 064
  6. BRIVARACETAM [Suspect]
     Active Substance: BRIVARACETAM
     Indication: Product used for unknown indication
     Dosage: 100 MILLIGRAM, BID (EXPOSURE AT 2 TRIMESTER)
     Route: 064
  7. PERAMPANEL [Suspect]
     Active Substance: PERAMPANEL
     Indication: Product used for unknown indication
     Route: 064

REACTIONS (6)
  - Intestinal atresia [Unknown]
  - Patent ductus arteriosus [Unknown]
  - Pulmonary haemorrhage [Unknown]
  - Coagulopathy [Unknown]
  - Premature baby [Unknown]
  - Foetal exposure during pregnancy [Unknown]
